FAERS Safety Report 10210233 (Version 2)
Quarter: 2014Q2

REPORT INFORMATION
  Report Type: Spontaneous
  Country: DE (occurrence: DE)
  Receive Date: 20140602
  Receipt Date: 20140625
  Transmission Date: 20141212
  Serious: Yes (Other)
  Sender: FDA-Public Use
  Company Number: DE-JNJFOC-20140515969

PATIENT
  Sex: Female
  Weight: 44 kg

DRUGS (1)
  1. DUROGESIC SMAT [Suspect]
     Indication: PAIN
     Route: 062

REACTIONS (1)
  - Glucose tolerance impaired [Not Recovered/Not Resolved]
